FAERS Safety Report 10216037 (Version 1)
Quarter: 2014Q2

REPORT INFORMATION
  Report Type: Spontaneous
  Country: US (occurrence: None)
  Receive Date: 20140603
  Receipt Date: 20140603
  Transmission Date: 20141212
  Serious: No
  Sender: FDA-Public Use
  Company Number: None

PATIENT
  Age: 65 Year
  Sex: Female
  Weight: 54.43 kg

DRUGS (1)
  1. TERBINAFINE [Suspect]
     Indication: ONYCHOMYCOSIS
     Dosage: 1  ONCE DAILY TAKEN BY MOUTH
     Route: 048
     Dates: start: 20140226, end: 20140524

REACTIONS (11)
  - Cardiac flutter [None]
  - Palpitations [None]
  - Heart rate irregular [None]
  - Anxiety [None]
  - Disturbance in attention [None]
  - Memory impairment [None]
  - Headache [None]
  - Hot flush [None]
  - Bladder prolapse [None]
  - Blood oestrogen [None]
  - Weight increased [None]
